FAERS Safety Report 5772656-2 (Version None)
Quarter: 2008Q2

REPORT INFORMATION
  Report Type: 
  Country: None (occurrence: None)
  Receive Date: 20080613
  Receipt Date: 20080610
  Transmission Date: 20081010
  Serious: Yes (Other)
  Sender: FDA-Public Use
  Company Number: US-BOEHRINGER INGELHEIM GMBH, GERMANY-2006-BP-14741PF

PATIENT
  Sex: Female
  Weight: 64 kg

DRUGS (11)
  1. SPIRIVA [Suspect]
     Indication: CHRONIC OBSTRUCTIVE PULMONARY DISEASE
     Route: 055
     Dates: end: 20061128
  2. CHANTIX [Suspect]
     Indication: SMOKING CESSATION THERAPY
     Dates: end: 20060101
  3. CHANTIX [Suspect]
     Indication: CHRONIC OBSTRUCTIVE PULMONARY DISEASE
     Dates: start: 20080205
  4. XANAX [Suspect]
     Indication: DEPRESSION
  5. GLYCOLAX [Concomitant]
     Indication: CONSTIPATION
  6. ICAP [Concomitant]
     Indication: CONSTIPATION
  7. ADVAIR DISKUS 100/50 [Concomitant]
     Indication: CHRONIC OBSTRUCTIVE PULMONARY DISEASE
  8. ALBUTEROL [Concomitant]
     Indication: CHRONIC OBSTRUCTIVE PULMONARY DISEASE
  9. PREVACID [Concomitant]
     Indication: GASTROOESOPHAGEAL REFLUX DISEASE
  10. SINGULAIR [Concomitant]
  11. ZETIA [Concomitant]

REACTIONS (31)
  - ANXIETY [None]
  - BREATH SOUNDS ABNORMAL [None]
  - BRONCHITIS [None]
  - CHRONIC OBSTRUCTIVE PULMONARY DISEASE [None]
  - CONSTIPATION [None]
  - COUGH [None]
  - DRY EYE [None]
  - FACE INJURY [None]
  - FALL [None]
  - FEELING ABNORMAL [None]
  - GAIT DISTURBANCE [None]
  - HYPOTENSION [None]
  - JOINT SWELLING [None]
  - LIP SWELLING [None]
  - LOWER RESPIRATORY TRACT INFECTION [None]
  - MALAISE [None]
  - MUSCLE DISORDER [None]
  - MYOCARDIAL INFARCTION [None]
  - NASAL OEDEMA [None]
  - NAUSEA [None]
  - ORAL FUNGAL INFECTION [None]
  - PAIN [None]
  - PAIN IN EXTREMITY [None]
  - PNEUMONIA PRIMARY ATYPICAL [None]
  - PRODUCTIVE COUGH [None]
  - PULMONARY CONGESTION [None]
  - PYREXIA [None]
  - SELF-INJURIOUS IDEATION [None]
  - THINKING ABNORMAL [None]
  - TRAUMATIC SHOCK [None]
  - WHEEZING [None]
